FAERS Safety Report 6571457-5 (Version None)
Quarter: 2010Q1

REPORT INFORMATION
  Report Type: 
  Country: None (occurrence: None)
  Receive Date: 20100205
  Receipt Date: 20100127
  Transmission Date: 20100710
  Serious: Yes (Hospitalization)
  Sender: FDA-Public Use
  Company Number: FR-JNJFOC-20100111556

PATIENT
  Age: 28 Year
  Sex: Female
  Weight: 160 kg

DRUGS (3)
  1. REMICADE [Suspect]
     Indication: CROHN'S DISEASE
     Route: 042
     Dates: start: 20090807, end: 20091201
  2. REMICADE [Suspect]
     Route: 042
     Dates: start: 20090807, end: 20091201
  3. REMICADE [Suspect]
     Route: 042
     Dates: start: 20090807, end: 20091201

REACTIONS (1)
  - PILONIDAL CYST [None]
